FAERS Safety Report 23863108 (Version 1)
Quarter: 2024Q2

REPORT INFORMATION
  Report Type: Spontaneous
  Country: JP (occurrence: None)
  Receive Date: 20240516
  Receipt Date: 20240516
  Transmission Date: 20240716
  Serious: Yes (Other)
  Sender: FDA-Public Use
  Company Number: 2024A110180

PATIENT
  Age: 74 Year
  Sex: Female

DRUGS (2)
  1. FASLODEX [Suspect]
     Active Substance: FULVESTRANT
     Indication: Breast cancer female
     Dosage: DOSE UNKNOWN
     Route: 030
  2. ABEMACICLIB [Concomitant]
     Active Substance: ABEMACICLIB
     Dosage: DOSE UNKNOWN

REACTIONS (1)
  - Myelosuppression [Unknown]
